FAERS Safety Report 10281871 (Version 1)
Quarter: 2014Q3

REPORT INFORMATION
  Report Type: Spontaneous
  Country: ZA (occurrence: ZA)
  Receive Date: 20140707
  Receipt Date: 20140707
  Transmission Date: 20150326
  Serious: Yes (Hospitalization)
  Sender: FDA-Public Use
  Company Number: ZA-SA-2014SA085889

PATIENT
  Age: 50 Year
  Sex: Male

DRUGS (1)
  1. CLEXANE [Suspect]
     Active Substance: ENOXAPARIN SODIUM
     Indication: PROPHYLAXIS
     Route: 058

REACTIONS (3)
  - Skin ulcer [Recovering/Resolving]
  - Infection [Recovering/Resolving]
  - Vasculitis [Recovering/Resolving]
